FAERS Safety Report 11077222 (Version 2)
Quarter: 2015Q2

REPORT INFORMATION
  Report Type: Spontaneous
  Country: NL (occurrence: NL)
  Receive Date: 20150429
  Receipt Date: 20150529
  Transmission Date: 20150821
  Serious: Yes (Other)
  Sender: FDA-Public Use
  Company Number: ALCN2015NL002654

PATIENT
  Age: 49 Year
  Sex: Female
  Weight: 70 kg

DRUGS (5)
  1. TIMOLOL [Concomitant]
     Active Substance: TIMOLOL
     Indication: GLAUCOMA
     Dosage: 1DD1
  2. TRAVATAN [Suspect]
     Active Substance: TRAVOPROST
     Indication: GLAUCOMA
     Dosage: 1DD1
     Route: 047
     Dates: start: 20150213, end: 20150331
  3. AZOPT [Concomitant]
     Active Substance: BRINZOLAMIDE
     Indication: GLAUCOMA
     Dosage: 2DD1
     Route: 047
  4. NOVORAPID [Concomitant]
     Active Substance: INSULIN ASPART
     Indication: DIABETES MELLITUS
     Dosage: 4DD
  5. LEVEMIR [Concomitant]
     Active Substance: INSULIN DETEMIR
     Indication: DIABETES MELLITUS
     Dosage: 1DD

REACTIONS (3)
  - Eye irritation [Recovered/Resolved]
  - Vision blurred [Recovered/Resolved]
  - Injury corneal [Recovering/Resolving]

NARRATIVE: CASE EVENT DATE: 20150314
